FAERS Safety Report 21896025 (Version 1)
Quarter: 2023Q1

REPORT INFORMATION
  Report Type: Spontaneous
  Country: CA (occurrence: CA)
  Receive Date: 20230123
  Receipt Date: 20230123
  Transmission Date: 20230418
  Serious: No
  Sender: FDA-Public Use
  Company Number: CA-USP-004802

PATIENT
  Age: 70 Year
  Sex: Female

DRUGS (2)
  1. NITRO-DUR [Suspect]
     Active Substance: NITROGLYCERIN
     Indication: Angina pectoris
     Route: 062
  2. SYMBICORT [Concomitant]
     Active Substance: BUDESONIDE\FORMOTEROL FUMARATE DIHYDRATE
     Indication: Product used for unknown indication
     Route: 065

REACTIONS (4)
  - Rash [Unknown]
  - Pruritus [Unknown]
  - Swelling [Unknown]
  - Erythema [Unknown]
